FAERS Safety Report 20414321 (Version 1)
Quarter: 2022Q1

REPORT INFORMATION
  Report Type: Spontaneous
  Country: IN (occurrence: IN)
  Receive Date: 20220202
  Receipt Date: 20220202
  Transmission Date: 20220423
  Serious: Yes (Other)
  Sender: FDA-Public Use
  Company Number: IN-SUN PHARMACEUTICAL INDUSTRIES LTD-2019R1-229520

PATIENT
  Age: 44 Year
  Sex: Female

DRUGS (10)
  1. DOXORUBICIN [Suspect]
     Active Substance: DOXORUBICIN
     Indication: Breast cancer metastatic
     Dosage: 80 MILLIGRAM
     Route: 042
     Dates: start: 201807
  2. ONDANSETRON [Suspect]
     Active Substance: ONDANSETRON
     Indication: Breast cancer metastatic
     Dosage: 8 MILLIGRAM, BID
     Route: 042
  3. RANITIDINE [Suspect]
     Active Substance: RANITIDINE
     Indication: Breast cancer metastatic
     Dosage: 50 MILLIGRAM, BID
     Route: 042
  4. NIFEDIPINE [Suspect]
     Active Substance: NIFEDIPINE
     Indication: Hypertension
     Dosage: 10 MILLIGRAM, QD
     Route: 065
  5. CYCLOPHOSPHAMIDE [Suspect]
     Active Substance: CYCLOPHOSPHAMIDE
     Indication: Breast cancer metastatic
     Dosage: 800 MILLIGRAM, ON DAY 1
     Route: 042
     Dates: start: 201807
  6. DEXAMETHASONE [Suspect]
     Active Substance: DEXAMETHASONE
     Indication: Breast cancer metastatic
     Dosage: 8 MILLIGRAM, BID
     Route: 042
  7. DEXAMETHASONE [Suspect]
     Active Substance: DEXAMETHASONE
     Dosage: 6 MG AT 6 HOURLY INTERVALS
     Route: 042
  8. DOCETAXEL [Suspect]
     Active Substance: DOCETAXEL
     Indication: Breast cancer metastatic
     Dosage: 100 MILLIGRAM (75 MG/SQM)
     Route: 042
     Dates: start: 201807
  9. FILGRASTIM [Suspect]
     Active Substance: FILGRASTIM
     Indication: Breast cancer metastatic
     Dosage: 300 MICROGRAM DAYS 2-4 OF THE CYCLE
     Route: 058
  10. THYROXINE [Suspect]
     Active Substance: LEVOTHYROXINE
     Indication: Hypothyroidism
     Dosage: 75 MICROGRAM, QD
     Route: 065

REACTIONS (3)
  - Therapy partial responder [Unknown]
  - Exposure during pregnancy [Unknown]
  - Premature delivery [Unknown]
